FAERS Safety Report 5988389-3 (Version None)
Quarter: 2008Q4

REPORT INFORMATION
  Report Type: 
  Country: None (occurrence: None)
  Receive Date: 20081210
  Receipt Date: 20081126
  Transmission Date: 20090506
  Serious: Yes (Hospitalization)
  Sender: FDA-Public Use
  Company Number: JP-ASTRAZENECA-2008AP08913

PATIENT
  Age: 18 Year
  Sex: Female

DRUGS (8)
  1. SEROQUEL [Suspect]
     Indication: DEPRESSION
     Route: 048
     Dates: start: 20070709, end: 20070717
  2. AMOXAPINE [Suspect]
     Indication: DEPRESSION
     Route: 048
     Dates: start: 20070626, end: 20070717
  3. CEREGASRON [Suspect]
     Indication: GASTRIC ULCER
     Route: 048
     Dates: start: 20070626, end: 20070717
  4. ERISPAN [Suspect]
     Indication: DEPRESSION
     Route: 048
     Dates: start: 20070626, end: 20070717
  5. LUVOX [Suspect]
     Indication: DEPRESSION
     Route: 048
     Dates: start: 20070626, end: 20070717
  6. ROHYPNOL [Suspect]
     Indication: DEPRESSION
     Route: 048
     Dates: start: 20070709, end: 20070717
  7. SOLANAX [Suspect]
     Indication: DEPRESSION
     Route: 048
     Dates: start: 20070710, end: 20070717
  8. DORAL [Suspect]
     Indication: DEPRESSION
     Route: 065
     Dates: start: 20070626, end: 20070709

REACTIONS (1)
  - STEVENS-JOHNSON SYNDROME [None]
